FAERS Safety Report 8344647-9 (Version None)
Quarter: 2012Q2

REPORT INFORMATION
  Report Type: 
  Country: None (occurrence: None)
  Receive Date: 20120508
  Receipt Date: 20120426
  Transmission Date: 20120825
  Serious: Yes (Hospitalization, Other)
  Sender: FDA-Public Use
  Company Number: IT-JNJFOC-20120501476

PATIENT
  Age: 91 Year
  Sex: Female

DRUGS (11)
  1. METFORMIN HCL [Interacting]
     Indication: TYPE 2 DIABETES MELLITUS
     Dosage: 3 X/DAY
     Route: 048
  2. GLYBURIDE [Interacting]
     Indication: TYPE 2 DIABETES MELLITUS
     Dosage: 3 X/DAY
     Route: 048
  3. ENALAPRIL MALEATE [Concomitant]
     Indication: HYPERTENSION
     Route: 065
  4. ACETYLSALICYLIC ACID SRT [Concomitant]
     Indication: PLATELET AGGREGATION INHIBITION
     Route: 048
  5. LEVOFLOXACIN [Suspect]
     Dosage: FOR 7 DAYS
     Route: 048
  6. TRAMADOL HYDROCHLORIDE [Interacting]
     Indication: PRODUCT USED FOR UNKNOWN INDICATION
     Dosage: WHEN REQUIRED
     Route: 065
  7. BUPRENORPHINE [Interacting]
     Indication: PAIN
     Route: 062
  8. NADROPARIN [Interacting]
     Indication: ISCHAEMIC STROKE
     Dosage: 3800.0 UI/D
     Route: 058
  9. LEVOFLOXACIN [Suspect]
     Indication: BACTERIAL INFECTION
     Route: 048
  10. LANSOPRAZOLE [Concomitant]
     Route: 065
  11. HYDROCHLOROTHIAZIDE [Concomitant]
     Indication: HYPERTENSION
     Route: 065

REACTIONS (5)
  - ARTERIAL THROMBOSIS LIMB [None]
  - COMA [None]
  - LOCALISED INFECTION [None]
  - BLOOD GLUCOSE DECREASED [None]
  - DRUG INTERACTION [None]
